FAERS Safety Report 24262016 (Version 3)
Quarter: 2024Q4

REPORT INFORMATION
  Report Type: Report from Study
  Country: US (occurrence: US)
  Receive Date: 20240829
  Receipt Date: 20241001
  Transmission Date: 20250115
  Serious: No
  Sender: ROCHE
  Company Number: US-ROCHE-10000062781

PATIENT
  Age: 77 Year
  Sex: Female
  Weight: 50.35 kg

DRUGS (12)
  1. ACTEMRA ACTPEN [Suspect]
     Active Substance: TOCILIZUMAB
     Indication: Giant cell arteritis
     Dosage: INJECT THE CONTENTS OF ONE DEVICE UNDER THE SKIN ONCE WEEKLY
     Route: 058
  2. PREDNISONE [Suspect]
     Active Substance: PREDNISONE
     Indication: Giant cell arteritis
     Dosage: PILL , TAPERED DOSING
     Route: 048
     Dates: start: 2024, end: 2024
  3. PREDNISONE [Suspect]
     Active Substance: PREDNISONE
     Dosage: PILL , TAPERED DOSING
     Route: 048
     Dates: start: 2024, end: 2024
  4. PREDNISONE [Suspect]
     Active Substance: PREDNISONE
     Dosage: PILL , TAPERED DOSING
     Route: 048
     Dates: start: 2024, end: 2024
  5. PREDNISONE [Suspect]
     Active Substance: PREDNISONE
     Dosage: PILL , TAPERED DOSING
     Route: 048
     Dates: start: 2024, end: 2024
  6. PREDNISONE [Suspect]
     Active Substance: PREDNISONE
     Dosage: PILL , TAPERED DOSING
     Route: 048
     Dates: start: 2024, end: 2024
  7. PREDNISONE [Suspect]
     Active Substance: PREDNISONE
     Dosage: PILL , TAPERED DOSING
     Route: 048
     Dates: start: 2024, end: 2024
  8. PREDNISONE [Suspect]
     Active Substance: PREDNISONE
     Dosage: PILL , TAPERED DOSING, FOR 17 DYAS
     Route: 042
     Dates: start: 2024, end: 2024
  9. PREDNISONE [Suspect]
     Active Substance: PREDNISONE
     Dosage: PILL , TAPERED DOSING, FOR 11 DYAS
     Route: 042
     Dates: start: 20240219, end: 202403
  10. PREDNISONE [Suspect]
     Active Substance: PREDNISONE
     Dosage: PILL
     Route: 048
     Dates: start: 2024
  11. GLIPIZIDE [Concomitant]
     Active Substance: GLIPIZIDE
     Indication: Diabetes mellitus
  12. METFORMIN [Concomitant]
     Active Substance: METFORMIN HYDROCHLORIDE
     Indication: Diabetes mellitus

REACTIONS (8)
  - Product complaint [Unknown]
  - Device defective [Unknown]
  - Device defective [Unknown]
  - Furuncle [Not Recovered/Not Resolved]
  - Thermal burn [Not Recovered/Not Resolved]
  - Injury [Not Recovered/Not Resolved]
  - Pruritus [Not Recovered/Not Resolved]
  - Accidental exposure to product [Unknown]

NARRATIVE: CASE EVENT DATE: 20240701
